FAERS Safety Report 6276286-8 (Version None)
Quarter: 2009Q3

REPORT INFORMATION
  Report Type: 
  Country: None (occurrence: None)
  Receive Date: 20090722
  Receipt Date: 20090715
  Transmission Date: 20100115
  Serious: Yes (Hospitalization)
  Sender: FDA-Public Use
  Company Number: FR-B.I. PHARMACEUTICALS,INC./RIDGEFIELD-2009-FF-00507FF

PATIENT
  Sex: Female

DRUGS (8)
  1. SPIRIVA [Suspect]
     Route: 055
  2. BUMEX [Concomitant]
     Dosage: 0.5 MG
     Route: 048
  3. EUPHYLLINE [Concomitant]
     Dosage: 600 MG
     Route: 048
  4. SERETIDE [Concomitant]
     Dosage: 5000/50 MCG
     Route: 055
  5. ZALDIAR [Concomitant]
     Dosage: 37.5 MG/325 MG
     Route: 048
  6. SERESTA [Concomitant]
  7. LOPERAMIDE HYDROCHLORIDE [Concomitant]
  8. NITROGLYCERIN [Concomitant]

REACTIONS (4)
  - ATRIAL FIBRILLATION [None]
  - ATRIAL FLUTTER [None]
  - FALL [None]
  - MALAISE [None]
